FAERS Safety Report 10921394 (Version 1)
Quarter: 2015Q1

REPORT INFORMATION
  Report Type: Spontaneous
  Country: US (occurrence: None)
  Receive Date: 20150313
  Receipt Date: 20150313
  Transmission Date: 20150721
  Serious: Yes (Death)
  Sender: FDA-Public Use
  Company Number: None

PATIENT
  Age: 45 Year
  Sex: Male
  Weight: 90.9 kg

DRUGS (13)
  1. WARFARIN 7.5MG UNKNOWN [Suspect]
     Active Substance: WARFARIN
     Indication: ANTICOAGULANT THERAPY
     Dosage: 1 TABLET QD ORAL
     Route: 048
     Dates: start: 2009, end: 20141105
  2. LABETALOL [Concomitant]
     Active Substance: LABETALOL\LABETALOL HYDROCHLORIDE
  3. BACLOFEN. [Concomitant]
     Active Substance: BACLOFEN
  4. CLOMIPHENE [Concomitant]
     Active Substance: CLOMIPHENE
  5. DANTROLENE [Concomitant]
     Active Substance: DANTROLENE
  6. CHOLECALCIFEROL [Concomitant]
     Active Substance: CHOLECALCIFEROL
  7. ESOMEPRAZOLE [Concomitant]
     Active Substance: ESOMEPRAZOLE
  8. FERREX [Concomitant]
  9. LEVETIRACETAM. [Concomitant]
     Active Substance: LEVETIRACETAM
  10. AMLODIPINE [Concomitant]
     Active Substance: AMLODIPINE BESYLATE
  11. ASCORBIC ACID. [Concomitant]
     Active Substance: ASCORBIC ACID
  12. ACETAMINOPHEN. [Concomitant]
     Active Substance: ACETAMINOPHEN
  13. VILAZODONE [Concomitant]
     Active Substance: VILAZODONE

REACTIONS (6)
  - Haematoma [None]
  - International normalised ratio increased [None]
  - Pulmonary oedema [None]
  - Haemorrhagic anaemia [None]
  - Sepsis [None]
  - Pneumonia [None]

NARRATIVE: CASE EVENT DATE: 20141106
